FAERS Safety Report 4630761-8 (Version None)
Quarter: 2005Q2

REPORT INFORMATION
  Report Type: 
  Country: None (occurrence: None)
  Receive Date: 20050406
  Receipt Date: 20050330
  Transmission Date: 20051028
  Serious: Yes (Disabling)
  Sender: FDA-Public Use
  Company Number: 2005UW03059

PATIENT
  Age: 58 Year
  Sex: Female
  Weight: 66.6788 kg

DRUGS (1)
  1. CRESTOR [Suspect]
     Dosage: 10 MG PO
     Route: 048

REACTIONS (2)
  - PULMONARY FUNCTION TEST DECREASED [None]
  - RESPIRATORY DISTRESS [None]
